FAERS Safety Report 8572752-0 (Version None)
Quarter: 2012Q3

REPORT INFORMATION
  Report Type: 
  Country: None (occurrence: None)
  Receive Date: 20120806
  Receipt Date: 20120802
  Transmission Date: 20120928
  Serious: No
  Sender: FDA-Public Use
  Company Number: US-PFIZER INC-2012148717

PATIENT
  Age: 75 Year
  Sex: Male

DRUGS (3)
  1. DEPO-TESTOSTERONE [Suspect]
     Indication: BLOOD TESTOSTERONE DECREASED
     Dosage: 200 MG, CYCLIC (EVERY 3 TO 4 WEEKS)
     Dates: start: 20120530
  2. TESTOSTERONE CYPIONATE [Suspect]
     Indication: BLOOD TESTOSTERONE DECREASED
     Dosage: 200 MG EVERY 3 TO 4 WEEKS
     Dates: end: 20120101
  3. DEPO-TESTOSTERONE [Suspect]
     Dosage: 200 MG/ML, (10 ML VIAL)

REACTIONS (2)
  - DRUG INEFFECTIVE [None]
  - ACNE [None]
